FAERS Safety Report 23184589 (Version 1)
Quarter: 2023Q4

REPORT INFORMATION
  Report Type: Spontaneous
  Country: US (occurrence: US)
  Receive Date: 20231115
  Receipt Date: 20231115
  Transmission Date: 20240110
  Serious: No
  Sender: FDA-Public Use
  Company Number: US-ELI_LILLY_AND_COMPANY-US202311007205

PATIENT
  Sex: Female
  Weight: 90 kg

DRUGS (1)
  1. MOUNJARO [Suspect]
     Active Substance: TIRZEPATIDE
     Indication: Binge eating
     Dosage: UNK UNK, WEEKLY (1/W)
     Route: 065

REACTIONS (3)
  - Product tampering [Unknown]
  - Decreased activity [Unknown]
  - Bowel movement irregularity [Unknown]
